FAERS Safety Report 5024908-1 (Version None)
Quarter: 2006Q2

REPORT INFORMATION
  Report Type: 
  Country: None (occurrence: None)
  Receive Date: 20060426
  Receipt Date: 20060221
  Transmission Date: 20061013
  Serious: Yes (Other)
  Sender: FDA-Public Use
  Company Number: 2006026758

PATIENT
  Age: 60 Year
  Sex: Female
  Weight: 71.6683 kg

DRUGS (2)
  1. LYRICA [Suspect]
     Indication: UNEVALUABLE EVENT
     Dosage: 75 MG (75 MG, 1IN 1 D), ORAL
     Route: 048
     Dates: start: 20060206, end: 20060207
  2. MULTIVITAMIN [Concomitant]

REACTIONS (2)
  - MOVEMENT DISORDER [None]
  - PAIN [None]
